FAERS Safety Report 18562885 (Version 1)
Quarter: 2020Q4

REPORT INFORMATION
  Report Type: Spontaneous
  Country: US (occurrence: US)
  Receive Date: 20201130
  Receipt Date: 20201130
  Transmission Date: 20210114
  Serious: No
  Sender: FDA-Public Use
  Company Number: US-ROCHE-2524222

PATIENT
  Age: 92 Year

DRUGS (2)
  1. LUCENTIS [Suspect]
     Active Substance: RANIBIZUMAB
     Indication: NEOVASCULAR AGE-RELATED MACULAR DEGENERATION
     Dosage: SOLUTION FOR INFUSION
     Route: 047
     Dates: start: 20190106
  2. BEOVU [Concomitant]
     Active Substance: BROLUCIZUMAB-DBLL
     Dates: start: 20190106

REACTIONS (3)
  - Eye pruritus [Unknown]
  - Intentional product use issue [Unknown]
  - Off label use [Unknown]

NARRATIVE: CASE EVENT DATE: 20190107
